FAERS Safety Report 5844663-2 (Version None)
Quarter: 2008Q3

REPORT INFORMATION
  Report Type: 
  Country: None (occurrence: None)
  Receive Date: 20080812
  Receipt Date: 20080731
  Transmission Date: 20090109
  Serious: Yes (Hospitalization)
  Sender: FDA-Public Use
  Company Number: 2008AP001847

PATIENT
  Age: 79 Year
  Sex: Male

DRUGS (9)
  1. APO-DESMOPRESSIN SPRAY (DESMOPRESSIN ACETATE) [Suspect]
     Indication: DIABETES INSIPIDUS
     Dosage: 1 SPR; QD, 1 SPR; NAS_SPRAY; QD
     Dates: start: 20061201
  2. PREDNISONE [Concomitant]
  3. PREDNISONE [Concomitant]
  4. RANITIDINE [Concomitant]
  5. LEVOTHYROXINE SODIUM [Concomitant]
  6. LORAZEPAM [Concomitant]
  7. FINASTERIDE [Concomitant]
  8. GALANTAMINE HYDROBROMIDE [Concomitant]
  9. INSULIN (INSULIN) [Concomitant]

REACTIONS (2)
  - HYPERNATRAEMIA [None]
  - HYPONATRAEMIA [None]
